FAERS Safety Report 7640996-8 (Version None)
Quarter: 2011Q3

REPORT INFORMATION
  Report Type: 
  Country: None (occurrence: None)
  Receive Date: 20110728
  Receipt Date: 20110720
  Transmission Date: 20111222
  Serious: Yes (Other)
  Sender: FDA-Public Use
  Company Number: DE-ABBOTT-11P-062-0725884-00

PATIENT
  Sex: Male
  Weight: 83 kg

DRUGS (2)
  1. HUMIRA [Suspect]
     Indication: PSORIASIS
     Dates: start: 20090101, end: 20110318
  2. NITRENDIPIN [Concomitant]
     Indication: PRODUCT USED FOR UNKNOWN INDICATION

REACTIONS (9)
  - BENIGN RENAL NEOPLASM [None]
  - HIATUS HERNIA [None]
  - PULMONARY GRANULOMA [None]
  - TUBERCULOSIS [None]
  - RENAL CELL CARCINOMA [None]
  - LYMPH NODE CALCIFICATION [None]
  - GOITRE [None]
  - MYCOBACTERIUM TUBERCULOSIS COMPLEX TEST POSITIVE [None]
  - INFLAMMATION [None]
